FAERS Safety Report 10830861 (Version 1)
Quarter: 2015Q1

REPORT INFORMATION
  Report Type: Report from Study
  Country: US (occurrence: US)
  Receive Date: 20150219
  Receipt Date: 20150219
  Transmission Date: 20150721
  Serious: Yes (Hospitalization, Other)
  Sender: FDA-Public Use
  Company Number: US-ABBVIE-14P-163-1195243-00

PATIENT
  Age: 53 Year
  Sex: Female
  Weight: 91.25 kg

DRUGS (7)
  1. HUMIRA [Suspect]
     Active Substance: ADALIMUMAB
     Indication: PSORIATIC ARTHROPATHY
     Dates: start: 20131018, end: 20131129
  2. METFORMIN [Concomitant]
     Active Substance: METFORMIN HYDROCHLORIDE
     Indication: DIABETES MELLITUS
  3. PREDNISONE. [Concomitant]
     Active Substance: PREDNISONE
     Indication: PSORIATIC ARTHROPATHY
     Dates: start: 20130913
  4. GLIPIZIDE. [Concomitant]
     Active Substance: GLIPIZIDE
     Indication: DIABETES MELLITUS
  5. METFORMIN [Concomitant]
     Active Substance: METFORMIN HYDROCHLORIDE
  6. CELEBREX [Concomitant]
     Active Substance: CELECOXIB
     Indication: PRODUCT USED FOR UNKNOWN INDICATION
  7. PREDNISONE. [Concomitant]
     Active Substance: PREDNISONE

REACTIONS (22)
  - Stent placement [Unknown]
  - Nasopharyngitis [Recovered/Resolved]
  - Asthenia [Unknown]
  - Cough [Unknown]
  - Weight decreased [Unknown]
  - Flat affect [Unknown]
  - Pruritus [Not Recovered/Not Resolved]
  - Abdominal pain [Recovering/Resolving]
  - Blood pressure increased [Unknown]
  - Nasal congestion [Unknown]
  - Malaise [Unknown]
  - Rash [Unknown]
  - Sneezing [Not Recovered/Not Resolved]
  - Nausea [Recovering/Resolving]
  - Blood glucose increased [Unknown]
  - Skin disorder [Unknown]
  - Myalgia [Unknown]
  - Nephrolithiasis [Recovering/Resolving]
  - Insomnia [Unknown]
  - Drug ineffective [Unknown]
  - Headache [Unknown]
  - Dizziness [Unknown]

NARRATIVE: CASE EVENT DATE: 20131018
